FAERS Safety Report 6064445-9 (Version None)
Quarter: 2009Q1

REPORT INFORMATION
  Report Type: 
  Country: None (occurrence: None)
  Receive Date: 20090203
  Receipt Date: 20090203
  Transmission Date: 20090719
  Serious: Yes (Life-Threatening, Hospitalization)
  Sender: FDA-Public Use
  Company Number: None

PATIENT
  Age: 84 Year
  Sex: Female

DRUGS (7)
  1. CEFAZOLIN [Suspect]
     Indication: CARDIAC PACEMAKER BATTERY REPLACEMENT
     Dosage: 1GM ONCE IV BOLUS
     Route: 040
     Dates: start: 20080604, end: 20080604
  2. ZOLOFT [Concomitant]
  3. VERAPAMIL [Concomitant]
  4. WARFARIN SODIUM [Concomitant]
  5. DIGOXIN [Concomitant]
  6. SIMVASTATIN [Concomitant]
  7. XALATAN [Concomitant]

REACTIONS (3)
  - ATRIAL FIBRILLATION [None]
  - DRUG HYPERSENSITIVITY [None]
  - HYPOVENTILATION [None]
